FAERS Safety Report 13652774 (Version 1)
Quarter: 2017Q2

REPORT INFORMATION
  Report Type: Spontaneous
  Country: US (occurrence: US)
  Receive Date: 20170614
  Receipt Date: 20170614
  Transmission Date: 20170830
  Serious: No
  Sender: FDA-Public Use
  Company Number: US-ROCHE-1058078

PATIENT
  Sex: Male

DRUGS (1)
  1. XELODA [Suspect]
     Active Substance: CAPECITABINE
     Indication: PRODUCT USED FOR UNKNOWN INDICATION
     Dosage: 2000 MG AT 8 A.M. AND 1500 MG 8 P.M.
     Route: 065
     Dates: start: 20120329

REACTIONS (3)
  - Nausea [Unknown]
  - Rash erythematous [Unknown]
  - Constipation [Recovered/Resolved]
